FAERS Safety Report 10762428 (Version 2)
Quarter: 2015Q1

REPORT INFORMATION
  Report Type: Spontaneous
  Country: CZ (occurrence: CZ)
  Receive Date: 20150204
  Receipt Date: 20150306
  Transmission Date: 20150721
  Serious: Yes (Other)
  Sender: FDA-Public Use
  Company Number: CZ-TEVA-537925ISR

PATIENT
  Age: 68 Year
  Sex: Female

DRUGS (6)
  1. GLICLAZIDE [Suspect]
     Active Substance: GLICLAZIDE
     Indication: TYPE 2 DIABETES MELLITUS
     Dosage: 30 MILLIGRAM DAILY; 30MG/D, GRADUALLY INCREASED TO 90MG/D
     Route: 048
  2. METFORMIN [Suspect]
     Active Substance: METFORMIN HYDROCHLORIDE
     Indication: TYPE 2 DIABETES MELLITUS
     Dosage: 1000 MILLIGRAM DAILY; GRADUALLY INCREASED TO 500MG TWICE DAILY; THEN INCREASED TO 1000MG TWICE DAILY
     Route: 048
  3. ATORVASTATIN [Concomitant]
     Active Substance: ATORVASTATIN
     Indication: DYSLIPIDAEMIA
     Dosage: 20MG
     Route: 065
  4. PERINDOPRIL [Concomitant]
     Active Substance: PERINDOPRIL
     Indication: HYPERTENSION
     Dosage: 5MG
     Route: 065
  5. METFORMIN [Suspect]
     Active Substance: METFORMIN HYDROCHLORIDE
     Dosage: 2000 MILLIGRAM DAILY;
     Route: 048
  6. GLICLAZIDE [Suspect]
     Active Substance: GLICLAZIDE
     Dosage: 90 MILLIGRAM DAILY; 90MG/D
     Route: 048

REACTIONS (3)
  - Fall [Recovering/Resolving]
  - Hypoglycaemia [Recovering/Resolving]
  - Radius fracture [Recovering/Resolving]

NARRATIVE: CASE EVENT DATE: 201306
